FAERS Safety Report 8841170 (Version 2)
Quarter: 2012Q4

REPORT INFORMATION
  Report Type: 
  Country: IN (occurrence: IN)
  Receive Date: 20121015
  Receipt Date: 20121022
  Transmission Date: 20130627
  Serious: Yes (Other)
  Sender: FDA-Public Use
  Company Number: IN-ABBOTT-12P-078-0994107-00

PATIENT
  Age: 21 Year
  Sex: Female
  Weight: 32 kg

DRUGS (3)
  1. KLACID [Suspect]
     Indication: PNEUMONIA
     Route: 042
     Dates: start: 20121010, end: 20121011
  2. DERIPHYLLIN [Concomitant]
     Indication: WHEEZING
     Dosage: 1 AMP IV TWICE A DAY
     Route: 042
     Dates: start: 20121011
  3. DUOLIN [Concomitant]
     Indication: WHEEZING
     Dosage: 3 X DAILY
     Dates: start: 20121011

REACTIONS (5)
  - Phlebitis [Unknown]
  - Convulsion [Unknown]
  - Convulsion [Recovered/Resolved]
  - Loss of consciousness [Recovered/Resolved]
  - Postictal state [Unknown]
